FAERS Safety Report 5205185-5 (Version None)
Quarter: 2007Q1

REPORT INFORMATION
  Report Type: 
  Country: None (occurrence: None)
  Receive Date: 20070110
  Receipt Date: 20061229
  Transmission Date: 20070707
  Serious: Yes (Death, Hospitalization, Other)
  Sender: FDA-Public Use
  Company Number: US-PFIZER INC-2006108495

PATIENT
  Sex: Male
  Weight: 79.4 kg

DRUGS (2)
  1. CELEBREX [Suspect]
     Dates: start: 20020206, end: 20020206
  2. BEXTRA [Suspect]
     Indication: ARTHRITIS
     Dates: start: 20020101, end: 20040620

REACTIONS (1)
  - HAEMORRHAGIC STROKE [None]
